FAERS Safety Report 25180267 (Version 4)
Quarter: 2025Q4

REPORT INFORMATION
  Report Type: Spontaneous
  Country: EU (occurrence: EU)
  Receive Date: 20250409
  Receipt Date: 20251205
  Transmission Date: 20260117
  Serious: Yes (Other)
  Sender: JOHNSON AND JOHNSON
  Company Number: EU-JNJFOC-20250262332

PATIENT
  Sex: Male
  Weight: 81 kg

DRUGS (5)
  1. RYBREVANT [Suspect]
     Active Substance: AMIVANTAMAB-VMJW
     Indication: Non-small cell lung cancer metastatic
     Dates: end: 20250226
  2. RYBREVANT [Suspect]
     Active Substance: AMIVANTAMAB-VMJW
     Dosage: LAST INFUSION ON 10-MAR-2025 INFUSION 4
     Dates: start: 20250310
  3. RYBREVANT [Suspect]
     Active Substance: AMIVANTAMAB-VMJW
     Dosage: LAST INFUSION ON 11/FEB/2025
     Route: 065
  4. CARBOPLATIN [Concomitant]
     Active Substance: CARBOPLATIN
     Indication: Product used for unknown indication
     Dosage: 4 MG/ML/MIN
     Dates: start: 20250310
  5. PEMETREXED [Concomitant]
     Active Substance: PEMETREXED
     Indication: Product used for unknown indication
     Dosage: 400 MG/M2
     Dates: start: 20250310

REACTIONS (4)
  - Neutropenic colitis [Unknown]
  - Off label use [Unknown]
  - Wrong patient [Unknown]
  - Inappropriate schedule of product administration [Unknown]
